FAERS Safety Report 8445579-8 (Version None)
Quarter: 2012Q2

REPORT INFORMATION
  Report Type: 
  Country: None (occurrence: None)
  Receive Date: 20120618
  Receipt Date: 20120529
  Transmission Date: 20120825
  Serious: No
  Sender: FDA-Public Use
  Company Number: US-MYLANLABS-2012S1011053

PATIENT
  Age: 59 Year
  Sex: Female

DRUGS (1)
  1. DIVALPROEX SODIUM [Suspect]

REACTIONS (1)
  - CHEST PAIN [None]
